FAERS Safety Report 10204690 (Version 1)
Quarter: 2014Q2

REPORT INFORMATION
  Report Type: Spontaneous
  Country: FR (occurrence: FR)
  Receive Date: 20140529
  Receipt Date: 20140529
  Transmission Date: 20141212
  Serious: Yes (Hospitalization)
  Sender: FDA-Public Use
  Company Number: FR-JNJFOC-20140513300

PATIENT
  Age: 73 Year
  Sex: Female

DRUGS (11)
  1. XARELTO [Suspect]
     Indication: PRODUCT USED FOR UNKNOWN INDICATION
     Route: 048
     Dates: end: 20131204
  2. FLUDEX [Concomitant]
     Route: 048
     Dates: end: 20131204
  3. JANUVIA [Concomitant]
     Route: 048
     Dates: end: 20131204
  4. METFORMIN [Concomitant]
     Route: 048
  5. BROMAZEPAM [Concomitant]
     Route: 048
     Dates: end: 20131204
  6. BISOPROLOL BIOGARAN [Concomitant]
     Route: 048
     Dates: end: 20131204
  7. NOVONORM [Concomitant]
     Route: 048
     Dates: end: 20131204
  8. OMEPRAZOLE MAGNESIUM [Concomitant]
     Route: 048
  9. TEMESTA [Concomitant]
     Route: 048
     Dates: end: 20131204
  10. AMIODARONE [Concomitant]
     Route: 048
  11. LESCOL (FLUVASTATIN SODIUM) [Concomitant]
     Route: 048
     Dates: end: 20131204

REACTIONS (3)
  - Anaemia [Recovered/Resolved]
  - Melaena [Recovered/Resolved]
  - Decreased appetite [Recovered/Resolved]
